FAERS Safety Report 4286745-5 (Version None)
Quarter: 2004Q1

REPORT INFORMATION
  Report Type: 
  Country: None (occurrence: None)
  Receive Date: 20040206
  Receipt Date: 20040126
  Transmission Date: 20041129
  Serious: Yes (Other)
  Sender: FDA-Public Use
  Company Number: GB-GLAXOSMITHKLINE-B0321121A

PATIENT
  Age: 60 Year
  Sex: Male
  Weight: 83.64 kg

DRUGS (6)
  1. BUPROPION HYDROCHLORIDE [Suspect]
     Indication: SMOKER
     Dosage: 1TAB TWICE PER DAY
     Route: 048
     Dates: start: 20010411, end: 20010424
  2. RAMIPRIL [Concomitant]
     Route: 065
     Dates: start: 20000422
  3. ASPIRIN [Concomitant]
     Route: 065
     Dates: start: 20000422
  4. DILTIAZEM HYDROCHLORIDE [Concomitant]
     Route: 065
     Dates: start: 20001122
  5. ATORVASTATIN [Concomitant]
     Route: 065
     Dates: start: 20010305
  6. ELANTAN LA [Concomitant]
     Route: 065
     Dates: start: 20000422

REACTIONS (1)
  - ANGINA PECTORIS [None]
